FAERS Safety Report 9325534 (Version 1)
Quarter: 2013Q2

REPORT INFORMATION
  Report Type: Spontaneous
  Country: US (occurrence: None)
  Receive Date: 20130531
  Receipt Date: 20130531
  Transmission Date: 20140414
  Serious: Yes (Hospitalization)
  Sender: FDA-Public Use
  Company Number: None

PATIENT
  Age: 60 Year
  Sex: Male
  Weight: 81.2 kg

DRUGS (1)
  1. INTERFERON BETA-1B [Suspect]
     Indication: MULTIPLE SCLEROSIS
     Dosage: 0.3 MG EVERY OTHER DAY SUBCUTANEOUS (057)
     Route: 058
     Dates: start: 201301

REACTIONS (3)
  - Injection site cellulitis [None]
  - Capnocytophaga test positive [None]
  - Infection [None]
